FAERS Safety Report 22044450 (Version 1)
Quarter: 2023Q1

REPORT INFORMATION
  Report Type: Spontaneous
  Country: CA (occurrence: CA)
  Receive Date: 20230228
  Receipt Date: 20230228
  Transmission Date: 20230417
  Serious: Yes (Hospitalization)
  Sender: FDA-Public Use
  Company Number: CA-002147023-NVSC2023CA040876

PATIENT
  Age: 84 Year
  Sex: Female

DRUGS (1)
  1. ROSUVASTATIN CALCIUM [Suspect]
     Active Substance: ROSUVASTATIN CALCIUM
     Indication: Acute coronary syndrome
     Dosage: 40 MG, QD
     Route: 048

REACTIONS (6)
  - Acute kidney injury [Unknown]
  - Blood creatine phosphokinase abnormal [Unknown]
  - Gait disturbance [Unknown]
  - Hypoaesthesia [Unknown]
  - Myoglobin urine present [Unknown]
  - Asthenia [Unknown]
